FAERS Safety Report 7141464-2 (Version None)
Quarter: 2010Q4

REPORT INFORMATION
  Report Type: 
  Country: None (occurrence: None)
  Receive Date: 20101119
  Receipt Date: 20091116
  Transmission Date: 20110411
  Serious: Yes (Other)
  Sender: FDA-Public Use
  Company Number: 2009021404

PATIENT
  Sex: Male
  Weight: 92.5 kg

DRUGS (1)
  1. CARIMUNE NF [Suspect]
     Indication: PRIMARY IMMUNODEFICIENCY SYNDROME
     Dosage: (6 G/100 ML AT 3 ML/MIN FOR 30 MIN, THEN 4 ML/MIN INTRAVENOUS)
     Route: 042
     Dates: start: 20091114, end: 20091114

REACTIONS (3)
  - EYELID OEDEMA [None]
  - OXYGEN SATURATION DECREASED [None]
  - TACHYCARDIA [None]
